FAERS Safety Report 4669291-6 (Version None)
Quarter: 2005Q2

REPORT INFORMATION
  Report Type: 
  Country: None (occurrence: None)
  Receive Date: 20050523
  Receipt Date: 20050513
  Transmission Date: 20051028
  Serious: Yes (Life-Threatening, Hospitalization, Other)
  Sender: FDA-Public Use
  Company Number: US-NOVOPROD-244159

PATIENT
  Age: 71 Year
  Sex: Female
  Weight: 95 kg

DRUGS (16)
  1. NOVOLOG MIX 70/30 [Suspect]
     Indication: INSULIN-REQUIRING TYPE II DIABETES MELLITUS
     Dosage: 15 U, BID
     Route: 058
     Dates: start: 20050414
  2. ATENOLOL [Concomitant]
     Dosage: 100 MG, QD
     Route: 048
  3. OXYBUTYNIN [Concomitant]
     Dosage: 40 MG, QD
     Route: 048
  4. VERAPAMIL [Concomitant]
     Dosage: 240 MG, QD
     Route: 048
  5. POTASSIUM CHLORIDE [Concomitant]
     Dosage: 10 MEQ, QD
     Route: 048
  6. FUROSEMIDE [Concomitant]
     Dosage: 40 MG, QD
     Route: 048
  7. AMITRIPTYLINE [Concomitant]
     Dosage: 50 MG, QD
     Route: 048
  8. ACTONEL [Concomitant]
     Dosage: 35 MG, WEEKLY
     Route: 048
  9. SPIRONOLACTONE [Concomitant]
     Dosage: 50 MG, QD
     Route: 048
  10. ALLOPURINOL [Concomitant]
     Dosage: 300 MG, QD
  11. EZETIMIBE [Concomitant]
     Dosage: 10 MG, QD
     Route: 048
  12. SIMVASTATIN [Concomitant]
     Dosage: 20 MG, QD
     Route: 048
  13. ALBUTEROL [Concomitant]
     Route: 055
  14. ATROVENT [Concomitant]
     Route: 055
  15. ALBUTEROL [Concomitant]
     Dosage: .83 MG/ML, QD
  16. RHINOCORT [Concomitant]
     Dosage: UNK, UNK
     Route: 055

REACTIONS (9)
  - BLOOD GLUCOSE INCREASED [None]
  - BLOOD POTASSIUM INCREASED [None]
  - BRONCHITIS ACUTE [None]
  - CARDIAC ARREST [None]
  - CHRONIC OBSTRUCTIVE AIRWAYS DISEASE EXACERBATED [None]
  - DYSPNOEA [None]
  - HYPOTENSION [None]
  - PULMONARY EMBOLISM [None]
  - SEPSIS [None]
